FAERS Safety Report 5849284-3 (Version None)
Quarter: 2008Q3

REPORT INFORMATION
  Report Type: 
  Country: None (occurrence: None)
  Receive Date: 20080815
  Receipt Date: 20080805
  Transmission Date: 20090109
  Serious: Yes (Other)
  Sender: FDA-Public Use
  Company Number: CERZ-1000313

PATIENT
  Age: 7 Year
  Sex: Male
  Weight: 18.1 kg

DRUGS (2)
  1. CEREZYME [Suspect]
     Indication: GAUCHER'S DISEASE
     Dosage: 2200 U,Q2W, INTRAVENOUS
     Route: 042
     Dates: start: 20020901
  2. SINGULAIR [Concomitant]

REACTIONS (1)
  - OSTEONECROSIS [None]
